FAERS Safety Report 12465353 (Version 2)
Quarter: 2016Q3

REPORT INFORMATION
  Report Type: Spontaneous
  Country: US (occurrence: US)
  Receive Date: 20160614
  Receipt Date: 20160719
  Transmission Date: 20161109
  Serious: Yes (Hospitalization)
  Sender: FDA-Public Use
  Company Number: US-B.I. PHARMACEUTICALS,INC./RIDGEFIELD-2016-BI-37128BP

PATIENT
  Sex: Male
  Weight: 70.31 kg

DRUGS (1)
  1. TRADJENTA [Suspect]
     Active Substance: LINAGLIPTIN
     Indication: TYPE 2 DIABETES MELLITUS
     Dosage: 5 MG
     Route: 048
     Dates: start: 201512

REACTIONS (7)
  - Head injury [Recovered/Resolved]
  - Cerebral haemorrhage [Recovered/Resolved]
  - Scar [Not Recovered/Not Resolved]
  - Amnesia [Not Recovered/Not Resolved]
  - Gait disturbance [Recovered/Resolved]
  - Concussion [Recovered/Resolved]
  - Fall [Recovered/Resolved]

NARRATIVE: CASE EVENT DATE: 2015
